FAERS Safety Report 6643353-6 (Version None)
Quarter: 2010Q1

REPORT INFORMATION
  Report Type: 
  Country: None (occurrence: None)
  Receive Date: 20100319
  Receipt Date: 20100308
  Transmission Date: 20100710
  Serious: Yes (Hospitalization, Other)
  Sender: FDA-Public Use
  Company Number: PHEH2007US15444

PATIENT
  Sex: Female

DRUGS (47)
  1. ZOMETA [Suspect]
     Dosage: 4MG, MONTHLY
  2. CHEMOTHERAPEUTICS NOS [Concomitant]
     Dosage: UNK
     Dates: start: 20000403
  3. RADIATION THERAPY [Concomitant]
  4. HERCEPTIN [Concomitant]
     Dosage: UNK
     Dates: start: 20070401
  5. PROCRIT                            /00909301/ [Concomitant]
  6. KYTRIL [Concomitant]
  7. TAXOTERE [Concomitant]
     Dosage: WEEKLY
  8. AMBIEN [Concomitant]
     Dosage: 10 MG
  9. AMOXICILLIN + CLAVULANATE POTASSIUM [Concomitant]
     Dosage: 500-125 MG
  10. TRIAZOLAM [Concomitant]
     Dosage: 0.125 MG
  11. NEXIUM [Concomitant]
     Dosage: 40 MG
  12. LORAZEPAM [Concomitant]
     Dosage: 1 MG
  13. PENICILLIN VK [Concomitant]
     Dosage: 250 MG
  14. CLINDAMYCIN [Concomitant]
     Dosage: 20 MG
  15. AZITHROMYCIN [Concomitant]
     Dosage: 250 MG
  16. FEMARA [Concomitant]
     Dosage: 2.5 MG
     Dates: start: 20070401
  17. OXYCODONE HCL [Concomitant]
     Dosage: 20 MG
  18. CHLORHEXIDINE GLUCONATE [Concomitant]
  19. FLUCONAZOLE [Concomitant]
     Dosage: 150 MG
  20. CIPROFLOXACIN HYDROCHLORIDE [Concomitant]
     Dosage: 500 MG
  21. OSMOPREP (PHOSPHORIC ACID SODIUM) [Concomitant]
     Dosage: UNK
  22. OMEPRAZOLE [Concomitant]
     Dosage: 20 MG
  23. PREVACID [Concomitant]
     Dosage: 30 MG
  24. SYNTHROID [Concomitant]
     Dosage: 25 MCG
  25. CELEBREX [Concomitant]
     Dosage: 200 MG
  26. TEMAZEPAM [Concomitant]
     Dosage: 30 MG
  27. LUNESTA [Concomitant]
     Dosage: 1 MG
  28. ROZEREM [Concomitant]
     Dosage: 8 MG
  29. HYDROCODONE BITARTRATE AND ACETAMINOPHEN [Concomitant]
     Dosage: UNK
  30. CIPRO [Concomitant]
     Dosage: 500 MG
  31. DEXAMETHASONE [Concomitant]
     Dosage: 4 MG
  32. PROPOXYPHENE NAPSYLATE W/ ACETAMINOPHEN [Concomitant]
     Dosage: UNK
  33. CEPHALEXIN [Concomitant]
     Dosage: 500 MG
  34. VIOXX [Concomitant]
     Dosage: 25 MG
  35. TAMOXIFEN CITRATE [Concomitant]
     Dosage: 10 MG
  36. DOXYCYCLINE [Concomitant]
     Dosage: 100 MG
  37. RETIN-A [Concomitant]
     Dosage: UNK
  38. SSD [Concomitant]
     Dosage: UNK
  39. SULFAMETHOXAZOLE AND TRIMETHOPRIM [Concomitant]
     Dosage: UNK
  40. PREDNISONE [Concomitant]
     Dosage: 50 MG
  41. CIMETIDINE [Concomitant]
     Dosage: 300 MG
  42. DIPHENHYDRAMINE HYDROCHLORIDE [Concomitant]
     Dosage: 50 MG
  43. PROCHLORPERAZINE [Concomitant]
     Dosage: 10 MG
  44. PERCOCET [Concomitant]
     Dosage: UNK
     Route: 048
  45. XELODA [Concomitant]
  46. AROMASIN [Concomitant]
  47. LEVOXYL [Concomitant]

REACTIONS (32)
  - ANAEMIA [None]
  - ANHEDONIA [None]
  - ANXIETY [None]
  - AORTIC VALVE INCOMPETENCE [None]
  - ARTHRALGIA [None]
  - BACK PAIN [None]
  - BONE DENSITY DECREASED [None]
  - BONE LESION [None]
  - BURSITIS [None]
  - CENTRAL VENOUS CATHETERISATION [None]
  - DEVICE RELATED INFECTION [None]
  - ENDODONTIC PROCEDURE [None]
  - GAIT DISTURBANCE [None]
  - GASTROOESOPHAGEAL REFLUX DISEASE [None]
  - HYPOTHYROIDISM [None]
  - INJURY [None]
  - INSOMNIA [None]
  - METASTASES TO BONE [None]
  - NECK PAIN [None]
  - OSTEITIS [None]
  - OSTEOARTHRITIS [None]
  - OSTEOLYSIS [None]
  - OSTEONECROSIS [None]
  - PAIN [None]
  - PAIN IN EXTREMITY [None]
  - PULMONARY CONGESTION [None]
  - RADIOTHERAPY [None]
  - SCOLIOSIS [None]
  - SURGERY [None]
  - THROMBOCYTOPENIA [None]
  - TOOTH LOSS [None]
  - TOOTHACHE [None]
